FAERS Safety Report 20483968 (Version 12)
Quarter: 2022Q4

REPORT INFORMATION
  Report Type: Report from Study
  Country: CA (occurrence: CA)
  Receive Date: 20220217
  Receipt Date: 20221020
  Transmission Date: 20230113
  Serious: Yes (Other)
  Sender: FDA-Public Use
  Company Number: CA-TAKEDA-2021TUS027827

PATIENT
  Age: 56 Year
  Sex: Female
  Weight: 79 kg

DRUGS (8)
  1. HUMAN IMMUNOGLOBULIN G [Suspect]
     Active Substance: HUMAN IMMUNOGLOBULIN G
     Indication: Primary immunodeficiency syndrome
     Dosage: 10 GRAM, 1/WEEK
     Route: 050
     Dates: start: 20210329
  2. HUMAN IMMUNOGLOBULIN G [Suspect]
     Active Substance: HUMAN IMMUNOGLOBULIN G
     Dosage: 10 GRAM, 1/WEEK
     Route: 058
     Dates: start: 20210329
  3. RAMIPRIL [Concomitant]
     Active Substance: RAMIPRIL
     Dosage: UNK
     Route: 065
  4. ROSUVASTATIN [Concomitant]
     Active Substance: ROSUVASTATIN
     Dosage: UNK
     Route: 065
  5. FOSAMAX [Concomitant]
     Active Substance: ALENDRONATE SODIUM
     Dosage: UNK
     Route: 065
  6. SYNTHROID [Concomitant]
     Active Substance: LEVOTHYROXINE SODIUM
     Dosage: UNK
     Route: 065
  7. CALCIUM [Concomitant]
     Active Substance: CALCIUM
     Dosage: UNK
     Route: 065
  8. MAGNESIUM [Concomitant]
     Active Substance: MAGNESIUM
     Dosage: UNK
     Route: 065

REACTIONS (24)
  - Diverticulitis [Not Recovered/Not Resolved]
  - Dermatitis contact [Not Recovered/Not Resolved]
  - Joint injury [Unknown]
  - Condition aggravated [Unknown]
  - Weight decreased [Unknown]
  - Scar [Not Recovered/Not Resolved]
  - Nasopharyngitis [Unknown]
  - Infection [Not Recovered/Not Resolved]
  - Lower respiratory tract infection [Recovered/Resolved]
  - COVID-19 [Recovered/Resolved]
  - Mental disorder [Unknown]
  - Frustration tolerance decreased [Unknown]
  - Infusion site scar [Unknown]
  - Poor venous access [Not Recovered/Not Resolved]
  - Hyperhidrosis [Unknown]
  - Heart rate increased [Unknown]
  - Anxiety [Unknown]
  - Blood pressure increased [Unknown]
  - Malaise [Unknown]
  - Infusion site extravasation [Not Recovered/Not Resolved]
  - Stress [Unknown]
  - Product supply issue [Unknown]
  - Needle issue [Not Recovered/Not Resolved]
  - Product use complaint [Not Recovered/Not Resolved]

NARRATIVE: CASE EVENT DATE: 20220101
